FAERS Safety Report 6328822-0 (Version None)
Quarter: 2009Q3

REPORT INFORMATION
  Report Type: 
  Country: None (occurrence: None)
  Receive Date: 20090824
  Receipt Date: 20090824
  Transmission Date: 20100115
  Serious: Yes (Other)
  Sender: FDA-Public Use
  Company Number: None

PATIENT
  Age: 59 Year
  Sex: Male
  Weight: 91.173 kg

DRUGS (1)
  1. HYZAAR [Suspect]
     Indication: BLOOD PRESSURE
     Dosage: 20MG ONCE PER DAY PO
     Route: 048

REACTIONS (5)
  - DEPRESSION [None]
  - IMPAIRED WORK ABILITY [None]
  - INSOMNIA [None]
  - MALAISE [None]
  - TYPE 2 DIABETES MELLITUS [None]
